FAERS Safety Report 12183748 (Version 1)
Quarter: 2016Q1

REPORT INFORMATION
  Report Type: Spontaneous
  Country: FR (occurrence: FR)
  Receive Date: 20160316
  Receipt Date: 20160316
  Transmission Date: 20160526
  Serious: Yes (Hospitalization)
  Sender: FDA-Public Use
  Company Number: FR-009507513-1603FRA006269

PATIENT
  Age: 5 Year
  Sex: Male
  Weight: 20 kg

DRUGS (1)
  1. AERIUS [Suspect]
     Active Substance: DESLORATADINE
     Indication: URTICARIA
     Dosage: 2.5 ML, QD
     Route: 048
     Dates: start: 20160209, end: 20160209

REACTIONS (4)
  - Malaise [Recovered/Resolved]
  - Pallor [Recovered/Resolved]
  - Sense of oppression [Recovered/Resolved]
  - Vomiting [Recovered/Resolved]

NARRATIVE: CASE EVENT DATE: 20160209
